FAERS Safety Report 24185161 (Version 10)
Quarter: 2025Q3

REPORT INFORMATION
  Report Type: Spontaneous
  Country: US (occurrence: US)
  Receive Date: 20240807
  Receipt Date: 20250821
  Transmission Date: 20251021
  Serious: No
  Sender: DAIICHI
  Company Number: US-DAIICHI SANKYO, INC.-DSU-2024-139696AA

PATIENT
  Age: 42 Year
  Sex: Female

DRUGS (3)
  1. TURALIO [Suspect]
     Active Substance: PEXIDARTINIB HYDROCHLORIDE
     Indication: Connective tissue neoplasm
     Dosage: 250 MG (2 X 125MG), (2 CAPSULE BY MOUTH DAILY) BID
     Route: 048
     Dates: start: 20240705
  2. TURALIO [Suspect]
     Active Substance: PEXIDARTINIB HYDROCHLORIDE
     Indication: Soft tissue neoplasm
  3. MAGNESIUM OXIDE [Interacting]
     Active Substance: MAGNESIUM OXIDE
     Indication: Product used for unknown indication
     Route: 065

REACTIONS (17)
  - Ear infection [Not Recovered/Not Resolved]
  - Tooth infection [Recovered/Resolved]
  - Drug interaction [Recovered/Resolved]
  - Heavy menstrual bleeding [Recovered/Resolved]
  - Polyp [Not Recovered/Not Resolved]
  - Ecchymosis [Not Recovered/Not Resolved]
  - Pruritus [Recovered/Resolved]
  - Hair colour changes [Recovered/Resolved]
  - Platelet count decreased [Not Recovered/Not Resolved]
  - Tooth extraction [Not Recovered/Not Resolved]
  - Menstrual disorder [Not Recovered/Not Resolved]
  - Ill-defined disorder [Not Recovered/Not Resolved]
  - Hair colour changes [Not Recovered/Not Resolved]
  - Skin depigmentation [Not Recovered/Not Resolved]
  - Pain in jaw [Not Recovered/Not Resolved]
  - Headache [Not Recovered/Not Resolved]
  - Product dose omission issue [Not Recovered/Not Resolved]

NARRATIVE: CASE EVENT DATE: 20240701
